FAERS Safety Report 7730526-4 (Version None)
Quarter: 2011Q3

REPORT INFORMATION
  Report Type: 
  Country: None (occurrence: None)
  Receive Date: 20110901
  Receipt Date: 20110901
  Transmission Date: 20111222
  Serious: Yes (Disabling, Other)
  Sender: FDA-Public Use
  Company Number: None

PATIENT
  Age: 66 Year
  Sex: Female
  Weight: 102.5129 kg

DRUGS (1)
  1. METFORMIN HCL [Suspect]
     Indication: TYPE 2 DIABETES MELLITUS
     Dosage: 250 MG 3X
     Dates: start: 20110105, end: 20110728

REACTIONS (16)
  - VISUAL ACUITY REDUCED [None]
  - ABASIA [None]
  - FAECES DISCOLOURED [None]
  - MUSCLE SPASMS [None]
  - BLADDER DISORDER [None]
  - PERIPHERAL COLDNESS [None]
  - HEADACHE [None]
  - RASH [None]
  - ASTHENIA [None]
  - DIARRHOEA [None]
  - VISION BLURRED [None]
  - RHINORRHOEA [None]
  - DYSSTASIA [None]
  - FATIGUE [None]
  - PAIN IN EXTREMITY [None]
  - OEDEMA PERIPHERAL [None]
